FAERS Safety Report 13664184 (Version 2)
Quarter: 2017Q3

REPORT INFORMATION
  Report Type: Report from Study
  Country: US (occurrence: BR)
  Receive Date: 20170619
  Receipt Date: 20170901
  Transmission Date: 20171127
  Serious: Yes (Death, Life-Threatening, Hospitalization)
  Sender: FDA-Public Use
  Company Number: US-SUNOVION-2017SUN002582

PATIENT
  Age: 85 Year
  Sex: Male

DRUGS (1)
  1. INDACATEROL AND GLYCOPYRROLATE [Suspect]
     Active Substance: GLYCOPYRROLATE\INDACATEROL MALEATE
     Indication: PRODUCT USED FOR UNKNOWN INDICATION
     Dosage: (3 OR 4 MONTHS BEFORE), IN THE MORNING
     Route: 055
     Dates: start: 20161219

REACTIONS (9)
  - Septic shock [Fatal]
  - Oesophageal obstruction [Fatal]
  - Cardio-respiratory arrest [Fatal]
  - Vomiting [Unknown]
  - Hypoglycaemia [Unknown]
  - Oesophageal rupture [Fatal]
  - Apparent death [Unknown]
  - Secretion discharge [Unknown]
  - Cough [Unknown]

NARRATIVE: CASE EVENT DATE: 20161222
